FAERS Safety Report 11993170 (Version 1)
Quarter: 2016Q1

REPORT INFORMATION
  Report Type: Spontaneous
  Country: US (occurrence: US)
  Receive Date: 20160203
  Receipt Date: 20160203
  Transmission Date: 20160526
  Serious: No
  Sender: FDA-Public Use
  Company Number: PHEH2016US002618

PATIENT
  Sex: Male

DRUGS (1)
  1. VOTRIENT [Suspect]
     Active Substance: PAZOPANIB HYDROCHLORIDE
     Indication: NEOPLASM MALIGNANT
     Dosage: 800 MG, UNK
     Route: 048
     Dates: start: 20150903

REACTIONS (4)
  - Arthralgia [Unknown]
  - Asthenia [Unknown]
  - Somnolence [Unknown]
  - Blood pressure systolic increased [Unknown]
